FAERS Safety Report 6159918-4 (Version None)
Quarter: 2009Q2

REPORT INFORMATION
  Report Type: 
  Country: None (occurrence: None)
  Receive Date: 20090420
  Receipt Date: 20090409
  Transmission Date: 20091009
  Serious: Yes (Hospitalization, Other)
  Sender: FDA-Public Use
  Company Number: CH-ELI_LILLY_AND_COMPANY-CH200904001980

PATIENT
  Age: 44 Year
  Sex: Female

DRUGS (8)
  1. FLUCTINE [Suspect]
     Dosage: 20 MG, DAILY (1/D)
     Route: 048
     Dates: start: 20081201, end: 20081201
  2. IMUREK [Concomitant]
     Indication: CROHN'S DISEASE
     Dosage: 100 MG, DAILY (1/D)
     Route: 048
     Dates: start: 20000101
  3. PREDNISON [Concomitant]
     Dosage: 20 MG, DAILY (1/D)
  4. CIPROFLOXACIN HCL [Concomitant]
     Route: 048
     Dates: start: 20081201, end: 20081201
  5. ACCUPAQUE [Concomitant]
     Dosage: UNK, UNK
     Route: 042
     Dates: start: 20081223, end: 20081223
  6. FLAGYL [Concomitant]
     Route: 048
     Dates: start: 20081201, end: 20081201
  7. ROCEPHIN [Concomitant]
     Route: 048
     Dates: start: 20081201, end: 20081201
  8. ANESTHETICS [Concomitant]
     Dates: start: 20081201, end: 20090101

REACTIONS (2)
  - DRUG EXPOSURE DURING PREGNANCY [None]
  - PANCREATITIS ACUTE [None]
